FAERS Safety Report 10357839 (Version 1)
Quarter: 2014Q3

REPORT INFORMATION
  Report Type: Spontaneous
  Country: US (occurrence: None)
  Receive Date: 20140730
  Receipt Date: 20140730
  Transmission Date: 20150326
  Serious: Yes (Hospitalization, Congenital Anomaly, Other)
  Sender: FDA-Public Use
  Company Number: 2014AP003726

PATIENT
  Sex: Female
  Weight: 2.1 kg

DRUGS (1)
  1. PAXIL [Suspect]
     Active Substance: PAROXETINE HYDROCHLORIDE
     Route: 064
     Dates: start: 19990109, end: 19990606

REACTIONS (10)
  - Atelectasis [None]
  - Atrial septal defect [None]
  - Patent ductus arteriosus [None]
  - Apnoea [None]
  - Premature baby [None]
  - Jaundice neonatal [None]
  - Extrapyramidal disorder [None]
  - Respiratory distress [None]
  - Drug withdrawal syndrome [None]
  - Maternal drugs affecting foetus [None]
